FAERS Safety Report 6851557-2 (Version None)
Quarter: 2010Q3

REPORT INFORMATION
  Report Type: 
  Country: None (occurrence: None)
  Receive Date: 20100717
  Receipt Date: 20080118
  Transmission Date: 20110219
  Serious: No
  Sender: FDA-Public Use
  Company Number: US-PFIZER INC-2008006994

PATIENT
  Sex: Male
  Weight: 84.1 kg

DRUGS (3)
  1. CHANTIX [Suspect]
     Indication: SMOKING CESSATION THERAPY
     Route: 048
     Dates: start: 20071201
  2. ACETYLSALICYLIC ACID [Concomitant]
  3. ZOCOR [Concomitant]
     Dates: end: 20071201

REACTIONS (2)
  - DRUG DOSE OMISSION [None]
  - NAUSEA [None]
